FAERS Safety Report 22251152 (Version 1)
Quarter: 2023Q2

REPORT INFORMATION
  Report Type: Spontaneous
  Country: US (occurrence: None)
  Receive Date: 20230424
  Receipt Date: 20230424
  Transmission Date: 20230721
  Serious: Yes (Hospitalization)
  Sender: FDA-Public Use
  Company Number: None

PATIENT
  Age: 75 Year
  Sex: Male
  Weight: 117.03 kg

DRUGS (34)
  1. BEXAROTENE [Suspect]
     Active Substance: BEXAROTENE
     Indication: Cutaneous T-cell lymphoma
     Dosage: FREQUENCY : DAILY;?
     Route: 048
     Dates: start: 202203
  2. ALBUTEROL [Concomitant]
  3. ATORVASTATIN [Concomitant]
  4. BENZOYL [Concomitant]
  5. PEROXIDE [Concomitant]
  6. BRILINTA [Concomitant]
  7. CALCIUM 500/D [Concomitant]
  8. CALCIUM [Concomitant]
  9. CITALOPRAM [Concomitant]
  10. CLOBETASOL PROPIONATE E [Concomitant]
  11. DULOXETINE [Concomitant]
  12. DILTIAZEM [Concomitant]
     Active Substance: DILTIAZEM
  13. DIPHENOXYLATE AND ATROPINE [Concomitant]
  14. DOCUSATE [Concomitant]
  15. ELIQUIS [Concomitant]
  16. FUROSEMIDE [Concomitant]
  17. HUMALOG [Concomitant]
  18. HYDRALAZINE [Concomitant]
  19. HYDROXYZINE [Concomitant]
  20. HYDROCHLOROTHIAZIDE [Concomitant]
  21. INTERFERON ALFA-2B [Concomitant]
     Active Substance: INTERFERON ALFA-2B
  22. LIDOCAINE [Concomitant]
  23. LOPERAMIDE [Concomitant]
     Active Substance: LOPERAMIDE
  24. LORATADINE [Concomitant]
  25. MAG-OXIDE [Concomitant]
  26. METFORMIN [Concomitant]
  27. NOVOLIN 70/30 [Concomitant]
     Active Substance: INSULIN HUMAN
  28. PERCOCET [Concomitant]
     Active Substance: ACETAMINOPHEN\OXYCODONE HYDROCHLORIDE
  29. PREGABALIN [Concomitant]
  30. TAMSULOSIN [Concomitant]
  31. TRAZODONE [Concomitant]
  32. TRADJENTA [Concomitant]
  33. TRIAMCINOLONE [Concomitant]
  34. VITAMIN B2 [Concomitant]
     Active Substance: RIBOFLAVIN

REACTIONS (3)
  - Dysstasia [None]
  - Back pain [None]
  - Arthralgia [None]

NARRATIVE: CASE EVENT DATE: 20230421
